FAERS Safety Report 5266003-2 (Version None)
Quarter: 2007Q1

REPORT INFORMATION
  Report Type: 
  Country: None (occurrence: None)
  Receive Date: 20070315
  Receipt Date: 20070314
  Transmission Date: 20070707
  Serious: Yes (Life-Threatening)
  Sender: FDA-Public Use
  Company Number: HQWYE916207FEB07

PATIENT
  Age: 70 Year
  Sex: Male

DRUGS (1)
  1. ANCARON [Suspect]
     Indication: ATRIAL FIBRILLATION
     Route: 048

REACTIONS (1)
  - HEPATIC FIBROSIS [None]
